FAERS Safety Report 25205694 (Version 1)
Quarter: 2025Q2

REPORT INFORMATION
  Report Type: Spontaneous
  Country: FR (occurrence: FR)
  Receive Date: 20250417
  Receipt Date: 20250417
  Transmission Date: 20250716
  Serious: Yes (Hospitalization, Other)
  Sender: BRISTOL MYERS SQUIBB
  Company Number: None

PATIENT
  Age: 72 Year
  Sex: Male

DRUGS (2)
  1. YERVOY [Suspect]
     Active Substance: IPILIMUMAB
     Indication: Clear cell renal cell carcinoma
     Dosage: 1 MG/KG EVERY 3 WEEKS
     Route: 042
     Dates: start: 20241125, end: 20250106
  2. OPDIVO [Suspect]
     Active Substance: NIVOLUMAB
     Indication: Renal cancer metastatic
     Dosage: 3MG/KG EVERY 3 WEEKS.
     Route: 042
     Dates: start: 20241125, end: 20250106

REACTIONS (2)
  - Myalgia [Recovering/Resolving]
  - Dilated cardiomyopathy [Recovering/Resolving]

NARRATIVE: CASE EVENT DATE: 20241201
